FAERS Safety Report 6935756-7 (Version None)
Quarter: 2010Q3

REPORT INFORMATION
  Report Type: 
  Country: None (occurrence: None)
  Receive Date: 20100823
  Receipt Date: 20100812
  Transmission Date: 20110219
  Serious: Yes (Hospitalization, Other)
  Sender: FDA-Public Use
  Company Number: CA-ASTRAZENECA-2010SE37974

PATIENT
  Sex: Male

DRUGS (5)
  1. ATACAND [Suspect]
     Indication: HYPERTENSION
     Route: 048
  2. BIAXIN [Concomitant]
     Indication: CHEST DISCOMFORT
     Route: 048
  3. MINOCYCLINE HCL [Concomitant]
     Indication: SKIN DISORDER
     Route: 048
  4. VENTOLIN [Concomitant]
  5. FLOVENT [Concomitant]

REACTIONS (3)
  - LIP SWELLING [None]
  - OEDEMA MOUTH [None]
  - SWOLLEN TONGUE [None]
